FAERS Safety Report 19769979 (Version 6)
Quarter: 2022Q4

REPORT INFORMATION
  Report Type: Report from Study
  Country: BR (occurrence: BR)
  Receive Date: 20210831
  Receipt Date: 20221004
  Transmission Date: 20230113
  Serious: Yes (Hospitalization, Disabling)
  Sender: FDA-Public Use
  Company Number: BR-ABBVIE-21K-020-4054893-00

PATIENT
  Sex: Female
  Weight: 72 kg

DRUGS (3)
  1. RINVOQ [Suspect]
     Active Substance: UPADACITINIB
     Indication: Rheumatoid arthritis
     Dosage: 1 TABLET
     Route: 048
  2. RINVOQ [Suspect]
     Active Substance: UPADACITINIB
     Indication: Rheumatoid arthritis
     Dosage: 15 MILLIGRAM
     Route: 048
  3. BENSERAZIDE\LEVODOPA [Concomitant]
     Active Substance: BENSERAZIDE\LEVODOPA
     Indication: Parkinson^s disease
     Dosage: 1 TABLET
     Dates: start: 2016

REACTIONS (21)
  - Gait inability [Recovered/Resolved]
  - Urinary tract infection [Recovered/Resolved]
  - Bursitis [Recovering/Resolving]
  - Blood sodium decreased [Recovered/Resolved]
  - Blood potassium decreased [Recovered/Resolved]
  - Pain in extremity [Recovering/Resolving]
  - Rheumatoid arthritis [Recovering/Resolving]
  - Immunodeficiency [Recovering/Resolving]
  - Therapeutic product effect incomplete [Unknown]
  - Mouth ulceration [Recovered/Resolved]
  - Therapeutic response shortened [Unknown]
  - Fibromyalgia [Not Recovered/Not Resolved]
  - Emotional disorder [Unknown]
  - Stress [Unknown]
  - Pain [Unknown]
  - Intervertebral disc protrusion [Not Recovered/Not Resolved]
  - Constipation [Recovering/Resolving]
  - Urinary tract infection [Unknown]
  - Fall [Unknown]
  - Skin discolouration [Unknown]
  - Mobility decreased [Unknown]

NARRATIVE: CASE EVENT DATE: 20210101
